FAERS Safety Report 6166647-X (Version None)
Quarter: 2009Q2

REPORT INFORMATION
  Report Type: 
  Country: None (occurrence: None)
  Receive Date: 20090423
  Receipt Date: 20090423
  Transmission Date: 20091009
  Serious: Yes (Other)
  Sender: FDA-Public Use
  Company Number: None

PATIENT
  Age: 68 Year
  Sex: Female
  Weight: 113.3993 kg

DRUGS (2)
  1. FLUOXETINE [Suspect]
     Indication: DEPRESSION
     Dosage: 20MG TID PO
     Route: 048
     Dates: start: 20080703, end: 20081001
  2. SERTRALINE [Suspect]
     Indication: DEPRESSION
     Dosage: 100MG BID PO
     Route: 048

REACTIONS (1)
  - DRUG INEFFECTIVE [None]
